FAERS Safety Report 15340597 (Version 2)
Quarter: 2019Q1

REPORT INFORMATION
  Report Type: Report from Study
  Country: US (occurrence: US)
  Receive Date: 20180831
  Receipt Date: 20190123
  Transmission Date: 20190417
  Serious: Yes (Death, Hospitalization, Other)
  Sender: FDA-Public Use
  Company Number: US-ACTELION-A-US2018-166530

PATIENT
  Age: 80 Year
  Sex: Female
  Weight: 68 kg

DRUGS (15)
  1. UPTRAVI [Suspect]
     Active Substance: SELEXIPAG
     Dosage: 800 QAM/1000 QPM
     Route: 048
     Dates: start: 20180612
  2. REVATIO [Suspect]
     Active Substance: SILDENAFIL CITRATE
     Indication: PRODUCT USED FOR UNKNOWN INDICATION
     Dosage: 80 MG, TID
     Route: 065
  3. VITAMIN D [Concomitant]
     Active Substance: CHOLECALCIFEROL
  4. METOLAZONE. [Concomitant]
     Active Substance: METOLAZONE
     Dosage: UNK
     Dates: start: 20180523
  5. CHOLECALCIFEROL [Concomitant]
     Active Substance: CHOLECALCIFEROL
  6. VITAMIN E [Concomitant]
     Active Substance: .ALPHA.-TOCOPHEROL
  7. COENZYME Q10 [Concomitant]
     Active Substance: UBIDECARENONE
  8. LATANOPROST. [Concomitant]
     Active Substance: LATANOPROST
  9. REVATIO [Suspect]
     Active Substance: SILDENAFIL CITRATE
     Dosage: 40 MG, TID
     Route: 065
     Dates: start: 20180803, end: 20180804
  10. ALDACTONE [Concomitant]
     Active Substance: SPIRONOLACTONE
     Dosage: 50 MG, BID
  11. COMBIGAN [Concomitant]
     Active Substance: BRIMONIDINE TARTRATE\TIMOLOL MALEATE
  12. UBIQUINOL [Concomitant]
     Active Substance: UBIQUINOL
  13. UPTRAVI [Suspect]
     Active Substance: SELEXIPAG
     Indication: PULMONARY ARTERIAL HYPERTENSION
     Dosage: 800 MCG, BID
     Route: 048
     Dates: start: 20160408, end: 20180804
  14. BUMEX [Concomitant]
     Active Substance: BUMETANIDE
     Dosage: 4 MG, BID
  15. OCUVITE [Concomitant]
     Active Substance: VITAMINS

REACTIONS (17)
  - Cardiorenal syndrome [Unknown]
  - Oedema [Fatal]
  - Injury [Fatal]
  - Hypotension [Unknown]
  - Hip fracture [Unknown]
  - Drug intolerance [Unknown]
  - Pulmonary arterial hypertension [Fatal]
  - Nausea [Fatal]
  - Ventricular tachycardia [Fatal]
  - Condition aggravated [Unknown]
  - Oedema peripheral [Unknown]
  - Pain [Unknown]
  - Disease progression [Fatal]
  - Acute kidney injury [Unknown]
  - Right ventricular failure [Fatal]
  - Fluid overload [Fatal]
  - Ascites [Fatal]

NARRATIVE: CASE EVENT DATE: 20180119
